FAERS Safety Report 6425019-0 (Version None)
Quarter: 2009Q4

REPORT INFORMATION
  Report Type: 
  Country: None (occurrence: None)
  Receive Date: 20091103
  Receipt Date: 20091030
  Transmission Date: 20100525
  Serious: Yes (Other)
  Sender: FDA-Public Use
  Company Number: GXKR2009DE11882

PATIENT
  Sex: Female

DRUGS (2)
  1. FADUL (NGX) [Suspect]
     Dosage: 40 MG, BID
     Route: 048
  2. SISARE [Concomitant]

REACTIONS (3)
  - BREAST HAEMORRHAGE [None]
  - BREAST INFLAMMATION [None]
  - BREAST TENDERNESS [None]
